FAERS Safety Report 26188103 (Version 1)
Quarter: 2025Q4

REPORT INFORMATION
  Report Type: Spontaneous
  Country: KR (occurrence: KR)
  Receive Date: 20251222
  Receipt Date: 20251222
  Transmission Date: 20260117
  Serious: Yes (Other)
  Sender: MYLAN
  Company Number: KR-MYLANLABS-2025M1028511

PATIENT
  Age: 68 Year
  Sex: Male

DRUGS (8)
  1. CLOZARIL [Suspect]
     Active Substance: CLOZAPINE
     Indication: Schizophrenia
     Dosage: 100 MILLIGRAM, QD
     Route: 061
     Dates: start: 20241115, end: 20250414
  2. CLOZARIL [Suspect]
     Active Substance: CLOZAPINE
     Dosage: UNK
  3. Sinil m [Concomitant]
     Dosage: 500 MILLIGRAM, TID
  4. Dulackhan easy [Concomitant]
     Dosage: UNK, QD
  5. Razepam [Concomitant]
     Dosage: 1 MILLIGRAM, QD
  6. TAMSPEED [Concomitant]
     Dosage: 0.2 MILLIGRAM, BID
  7. TROPINA [Concomitant]
     Dosage: UNK, QD
  8. MEDILAC-S [Concomitant]
     Dosage: UNK, TID (ENTERIC COATED CAP.)

REACTIONS (3)
  - Drug-induced liver injury [Unknown]
  - Neutrophil count decreased [Recovered/Resolved]
  - Aspartate aminotransferase increased [Unknown]

NARRATIVE: CASE EVENT DATE: 20250328
